FAERS Safety Report 12597353 (Version 1)
Quarter: 2016Q3

REPORT INFORMATION
  Report Type: Report from Study
  Country: BE (occurrence: BE)
  Receive Date: 20160727
  Receipt Date: 20160727
  Transmission Date: 20161109
  Serious: Yes (Other)
  Sender: FDA-Public Use
  Company Number: BE-SUN PHARMACEUTICAL INDUSTRIES LTD-2016R1-121012

PATIENT
  Sex: Male

DRUGS (4)
  1. CETUXIMAB [Interacting]
     Active Substance: CETUXIMAB
     Indication: TONSIL CANCER
     Dosage: WEEKLY
     Route: 065
  2. 5-FLUOROURACIL [Suspect]
     Active Substance: FLUOROURACIL
     Indication: TONSIL CANCER
     Dosage: 5 CYCLE OF 3-WEEKLY
     Route: 065
  3. CISPLATIN. [Suspect]
     Active Substance: CISPLATIN
     Indication: TONSIL CANCER
     Dosage: 5 CYCLE OF 3-WEEKLY
     Route: 065
  4. DOCETAXEL. [Suspect]
     Active Substance: DOCETAXEL
     Indication: TONSIL CANCER
     Dosage: 5 CYCLE OF 3-WEEKLY
     Route: 065

REACTIONS (4)
  - Drug interaction [Unknown]
  - Toxicity to various agents [Unknown]
  - Decreased appetite [Unknown]
  - Neutropenia [Unknown]
